FAERS Safety Report 5238315-X (Version None)
Quarter: 2007Q1

REPORT INFORMATION
  Report Type: 
  Country: None (occurrence: None)
  Receive Date: 20070215
  Receipt Date: 20070208
  Transmission Date: 20070707
  Serious: Yes (Death)
  Sender: FDA-Public Use
  Company Number: US-ELI_LILLY_AND_COMPANY-US200702001996

PATIENT
  Sex: Female

DRUGS (2)
  1. ZYPREXA [Suspect]
     Indication: PSYCHOTIC DISORDER
     Dosage: 30 MG, DAILY (1/D)
  2. ZYPREXA [Suspect]
     Dosage: 40 MG, DAILY (1/D)

REACTIONS (3)
  - FALL [None]
  - INJURY ASPHYXIATION [None]
  - PRESCRIBED OVERDOSE [None]
